FAERS Safety Report 11966249 (Version 1)
Quarter: 2016Q1

REPORT INFORMATION
  Report Type: Spontaneous
  Country: US (occurrence: US)
  Receive Date: 20160127
  Receipt Date: 20160127
  Transmission Date: 20160526
  Serious: No
  Sender: FDA-Public Use
  Company Number: US-SEPTODONT-201502943

PATIENT

DRUGS (1)
  1. CITANEST PLAIN [Suspect]
     Active Substance: PRILOCAINE HYDROCHLORIDE
     Indication: LOCAL ANAESTHESIA
     Dosage: NO DOSE INFORMATION PROVIDED
     Route: 004

REACTIONS (1)
  - Drug ineffective [Unknown]
